FAERS Safety Report 5383499-6 (Version None)
Quarter: 2007Q3

REPORT INFORMATION
  Report Type: 
  Country: None (occurrence: None)
  Receive Date: 20070706
  Receipt Date: 20070621
  Transmission Date: 20080115
  Serious: Yes (Hospitalization)
  Sender: FDA-Public Use
  Company Number: SPV1-2007-03333

PATIENT
  Age: 46 Year
  Sex: Female

DRUGS (4)
  1. PENTASA [Suspect]
     Indication: COLITIS ULCERATIVE
     Dosage: 3 G DAILY, ORAL
     Route: 048
     Dates: start: 20020520, end: 20070529
  2. PANTOPRAZOLE SODIUM [Concomitant]
  3. KETOROLAC TROMETHAMINE [Concomitant]
  4. RANIDIL (RANITIDINE HYDROCHLORIDE) [Concomitant]

REACTIONS (2)
  - GASTRIC ULCER [None]
  - GASTRODUODENITIS [None]
